FAERS Safety Report 13552973 (Version 1)
Quarter: 2017Q2

REPORT INFORMATION
  Report Type: Spontaneous
  Country: US (occurrence: US)
  Receive Date: 20170517
  Receipt Date: 20170517
  Transmission Date: 20170830
  Serious: No
  Sender: FDA-Public Use
  Company Number: US-PFIZER INC-2017210837

PATIENT
  Age: 89 Year
  Sex: Female
  Weight: 38.92 kg

DRUGS (3)
  1. XALKORI [Suspect]
     Active Substance: CRIZOTINIB
     Dosage: 250 MG, 1X/DAY (ONCE A DAY)
  2. XALKORI [Suspect]
     Active Substance: CRIZOTINIB
     Indication: SMALL CELL LUNG CANCER
     Dosage: 250 MG, 2X/DAY
     Dates: start: 201703, end: 201705
  3. XALKORI [Suspect]
     Active Substance: CRIZOTINIB
     Dosage: 250 MG, DAILY (TAKE 250 MG EVERY 24 HOURS)
     Route: 048
     Dates: start: 20170510

REACTIONS (2)
  - Oedema peripheral [Recovering/Resolving]
  - Weight increased [Unknown]

NARRATIVE: CASE EVENT DATE: 201705
